FAERS Safety Report 7105302-6 (Version None)
Quarter: 2010Q4

REPORT INFORMATION
  Report Type: 
  Country: None (occurrence: None)
  Receive Date: 20101108
  Receipt Date: 20101029
  Transmission Date: 20110411
  Serious: Yes (Hospitalization, Disabling, Other)
  Sender: FDA-Public Use
  Company Number: 2010AC000295

PATIENT
  Age: 31 Year
  Sex: Male

DRUGS (6)
  1. DIGOXIN [Suspect]
     Dosage: PO
     Route: 048
     Dates: start: 20060301, end: 20080601
  2. DIGOXIN [Suspect]
     Dosage: 0.125 MG; PO
     Route: 048
     Dates: start: 19830101
  3. DIGOXIN [Suspect]
     Dosage: 0.25 MG; QD; PO
     Route: 048
  4. LASIX [Concomitant]
  5. QUINIDINE HCL [Concomitant]
  6. POTASSIUM CHLORIDE [Concomitant]

REACTIONS (11)
  - ANXIETY [None]
  - ARRHYTHMIA [None]
  - ECONOMIC PROBLEM [None]
  - EJECTION FRACTION DECREASED [None]
  - ELECTROCARDIOGRAM T WAVE ABNORMAL [None]
  - HEART INJURY [None]
  - MULTIPLE INJURIES [None]
  - MYOCARDIAL INFARCTION [None]
  - PAIN [None]
  - SYNCOPE [None]
  - UNEVALUABLE EVENT [None]
